FAERS Safety Report 11460385 (Version 2)
Quarter: 2015Q4

REPORT INFORMATION
  Report Type: Report from Study
  Country: US (occurrence: US)
  Receive Date: 20150904
  Receipt Date: 20151007
  Transmission Date: 20160304
  Serious: Yes (Death, Life-Threatening, Hospitalization, Other)
  Sender: FDA-Public Use
  Company Number: US-BAXTER-2015BAX048626

PATIENT
  Age: 72 Year
  Sex: Male
  Weight: 72.73 kg

DRUGS (11)
  1. DECADRON [Suspect]
     Active Substance: DEXAMETHASONE
     Indication: PLASMA CELL MYELOMA
     Dosage: GIVEN OVER 30 MINUTES
     Route: 042
     Dates: start: 20150323, end: 20150608
  2. ALOXI [Suspect]
     Active Substance: PALONOSETRON HYDROCHLORIDE
     Indication: PLASMA CELL MYELOMA
     Dosage: GIVEN OVER 30 MINUTES
     Route: 042
     Dates: start: 20150608, end: 20150608
  3. MELPHALAN [Suspect]
     Active Substance: MELPHALAN
     Indication: REFRACTORY CANCER
  4. VINCRISTINE [Suspect]
     Active Substance: VINCRISTINE
     Indication: REFRACTORY CANCER
  5. CYTOXAN [Suspect]
     Active Substance: CYCLOPHOSPHAMIDE
     Indication: REFRACTORY CANCER
  6. MELPHALAN [Suspect]
     Active Substance: MELPHALAN
     Indication: PLASMA CELL MYELOMA
     Dosage: DAILY X 4 DAYS EACH CYCLE
     Route: 048
     Dates: start: 20150520, end: 20150608
  7. ALLOPURINOL. [Concomitant]
     Active Substance: ALLOPURINOL
     Indication: PRODUCT USED FOR UNKNOWN INDICATION
     Route: 048
  8. VINCRISTINE [Suspect]
     Active Substance: VINCRISTINE
     Indication: PLASMA CELL MYELOMA
     Dosage: DAY 1 EACH CYCLE, GIVEN OVER 2 MINS
     Route: 042
     Dates: start: 20150323, end: 20150608
  9. DECADRON [Suspect]
     Active Substance: DEXAMETHASONE
     Indication: REFRACTORY CANCER
  10. CYTOXAN [Suspect]
     Active Substance: CYCLOPHOSPHAMIDE
     Indication: PLASMA CELL MYELOMA
     Dosage: DAY 1 EACH CYCLE, GIVEN OVER 60 MINUTES
     Route: 042
     Dates: start: 20150323, end: 20150608
  11. ALOXI [Suspect]
     Active Substance: PALONOSETRON HYDROCHLORIDE
     Indication: REFRACTORY CANCER

REACTIONS (6)
  - Pancytopenia [Unknown]
  - Respiratory failure [Unknown]
  - Bacterial sepsis [Fatal]
  - Bacteraemia [Fatal]
  - Plasma cell myeloma [Fatal]
  - Acute kidney injury [Unknown]

NARRATIVE: CASE EVENT DATE: 20150613
